FAERS Safety Report 5503327-5 (Version None)
Quarter: 2007Q4

REPORT INFORMATION
  Report Type: 
  Country: None (occurrence: None)
  Receive Date: 20071031
  Receipt Date: 20071030
  Transmission Date: 20080405
  Serious: No
  Sender: FDA-Public Use
  Company Number: US-BOEHRINGER INGELHEIM PHARMACEUTICALS, INC.-2007-BP-18473BP

PATIENT
  Sex: Male

DRUGS (6)
  1. FLOMAX [Suspect]
     Indication: BENIGN PROSTATIC HYPERPLASIA
     Route: 048
     Dates: start: 20070801
  2. FLOMAX [Suspect]
     Indication: PROSTATE EXAMINATION ABNORMAL
  3. PRILOSEC [Concomitant]
  4. CLARINEX [Concomitant]
  5. BAYER LOW DOSE [Concomitant]
  6. CIPRO [Concomitant]
     Dates: start: 20070801

REACTIONS (7)
  - DYSURIA [None]
  - GINGIVAL PAIN [None]
  - INSOMNIA [None]
  - ORAL PAIN [None]
  - RHINORRHOEA [None]
  - SENSITIVITY OF TEETH [None]
  - TOOTHACHE [None]
